FAERS Safety Report 20552469 (Version 4)
Quarter: 2022Q2

REPORT INFORMATION
  Report Type: Spontaneous
  Country: US (occurrence: US)
  Receive Date: 20220304
  Receipt Date: 20220513
  Transmission Date: 20220721
  Serious: Yes (Other)
  Sender: FDA-Public Use
  Company Number: US-TORRENT-00011765

PATIENT
  Age: 36 Year
  Sex: Male

DRUGS (3)
  1. HERBALS\MITRAGYNINE [Interacting]
     Active Substance: HERBALS\MITRAGYNINE
     Indication: Product used for unknown indication
     Dosage: 90 G DAILY (0.75 G X 120 CAPSULE)
  2. QUETIAPINE [Interacting]
     Active Substance: QUETIAPINE
     Indication: Product used for unknown indication
     Dosage: 300 MG, NIGHTLY
     Route: 065
  3. VENLAFAXINE [Interacting]
     Active Substance: VENLAFAXINE HYDROCHLORIDE
     Indication: Product used for unknown indication
     Dosage: 150 MG
     Route: 065

REACTIONS (8)
  - Drug interaction [Unknown]
  - Toxicity to various agents [Unknown]
  - Serotonin syndrome [Recovered/Resolved]
  - Herbal interaction [Unknown]
  - Antipsychotic drug level above therapeutic [Unknown]
  - Electrocardiogram abnormal [Recovered/Resolved]
  - Antidepressant drug level above therapeutic [Unknown]
  - Electrocardiogram QT prolonged [Recovered/Resolved]
